FAERS Safety Report 7349873-3 (Version None)
Quarter: 2011Q1

REPORT INFORMATION
  Report Type: 
  Country: None (occurrence: None)
  Receive Date: 20110314
  Receipt Date: 20110308
  Transmission Date: 20110831
  Serious: Yes (Death)
  Sender: FDA-Public Use
  Company Number: IN-PFIZER INC-2011051394

PATIENT
  Age: 60 Year
  Sex: Female

DRUGS (6)
  1. ALPRAX [Concomitant]
     Dosage: 0.25 MG, UNK
  2. ISONIAZID [Concomitant]
     Dosage: 600 MG, 1X/DAY
  3. DEPIN [Concomitant]
  4. FOLIC ACID [Concomitant]
  5. SUTENT [Suspect]
     Indication: METASTATIC RENAL CELL CARCINOMA
     Dosage: 37.5 MG, 1X/DAY
     Route: 048
  6. MUCAINE [Concomitant]

REACTIONS (1)
  - DEATH [None]
